FAERS Safety Report 20008489 (Version 4)
Quarter: 2022Q3

REPORT INFORMATION
  Report Type: Spontaneous
  Country: CA (occurrence: CA)
  Receive Date: 20211028
  Receipt Date: 20220829
  Transmission Date: 20221026
  Serious: Yes (Death, Other)
  Sender: FDA-Public Use
  Company Number: CA-GLAXOSMITHKLINE-CA2021AMR176769

PATIENT
  Age: 78 Year
  Sex: Male

DRUGS (9)
  1. AMBRISENTAN [Suspect]
     Active Substance: AMBRISENTAN
     Indication: Pulmonary arterial hypertension
     Dosage: 1 DF, QD(10 MG)
     Route: 065
     Dates: start: 20210225
  2. ADCIRCA [Suspect]
     Active Substance: TADALAFIL
     Indication: Pulmonary arterial hypertension
     Dosage: 40 MG
     Route: 065
     Dates: start: 20161025
  3. ADCIRCA [Suspect]
     Active Substance: TADALAFIL
     Dosage: 40 MG
     Route: 065
     Dates: start: 20210225
  4. ADCIRCA [Suspect]
     Active Substance: TADALAFIL
     Dosage: 40 MG
     Route: 065
  5. UPTRAVI [Suspect]
     Active Substance: SELEXIPAG
     Indication: Pulmonary arterial hypertension
     Dosage: 400 MCG/MG, QD
     Route: 065
  6. UPTRAVI [Suspect]
     Active Substance: SELEXIPAG
     Dosage: 200 MCG/MG, QD
     Route: 065
     Dates: start: 20211012
  7. UPTRAVI [Suspect]
     Active Substance: SELEXIPAG
     Dosage: 400 UG, QD, 1 EVERY 1 DAY
     Route: 048
  8. UPTRAVI [Suspect]
     Active Substance: SELEXIPAG
     Dosage: 200 UG, QD, 1 EVERY 1 DAY
     Route: 048
     Dates: end: 20211012
  9. ACETAMINOPHEN [Concomitant]
     Active Substance: ACETAMINOPHEN
     Indication: Product used for unknown indication
     Dosage: UNK
     Route: 065

REACTIONS (11)
  - Death [Fatal]
  - Musculoskeletal chest pain [Fatal]
  - Neck pain [Fatal]
  - Headache [Fatal]
  - Cough [Fatal]
  - Back pain [Fatal]
  - Ear pain [Fatal]
  - Toothache [Fatal]
  - Pruritus [Fatal]
  - Discomfort [Fatal]
  - Pain [Fatal]

NARRATIVE: CASE EVENT DATE: 20210101
